FAERS Safety Report 18509205 (Version 1)
Quarter: 2020Q4

REPORT INFORMATION
  Report Type: Spontaneous
  Country: US (occurrence: US)
  Receive Date: 20201117
  Receipt Date: 20201117
  Transmission Date: 20210114
  Serious: No
  Sender: FDA-Public Use
  Company Number: US-AUROBINDO-AUR-APL-2020-046575

PATIENT
  Age: 60 Year
  Sex: Male
  Weight: 78.46 kg

DRUGS (1)
  1. DORZOLAMIDE HYDROCHLORIDE+TIMOLOL MALEATE [Suspect]
     Active Substance: DORZOLAMIDE HYDROCHLORIDE\TIMOLOL MALEATE
     Indication: GLAUCOMA
     Dosage: 2 GTT DROPS, TWO TIMES A DAY
     Route: 065

REACTIONS (2)
  - Erythema [Unknown]
  - Drug ineffective [Unknown]
